FAERS Safety Report 12981792 (Version 2)
Quarter: 2017Q1

REPORT INFORMATION
  Report Type: Report from Study
  Country: US (occurrence: US)
  Receive Date: 20161129
  Receipt Date: 20170109
  Transmission Date: 20170428
  Serious: Yes (Death, Hospitalization)
  Sender: FDA-Public Use
  Company Number: US-ACTELION-A-NJ2015-118033

PATIENT
  Age: 65 Year
  Sex: Female

DRUGS (15)
  1. INSULIN [Concomitant]
     Active Substance: INSULIN NOS
     Dosage: 2-12 UNITED QID
  2. PANTOPRAZOLE [Concomitant]
     Active Substance: PANTOPRAZOLE SODIUM
     Dosage: 40 MG, UNK
  3. TADALAFIL [Concomitant]
     Active Substance: TADALAFIL
     Dosage: 20 MG, UNK
  4. LASIX [Concomitant]
     Active Substance: FUROSEMIDE
     Dosage: 20 MG, QD
  5. ACETYLCYSTEINE. [Concomitant]
     Active Substance: ACETYLCYSTEINE
     Dosage: 4 MG, UNK
  6. FLUCONAZOLE. [Concomitant]
     Active Substance: FLUCONAZOLE
     Dosage: 200 MG, UNK
  7. PRORENAL VITAL [Concomitant]
  8. VENTAVIS [Concomitant]
     Active Substance: ILOPROST
     Indication: PULMONARY ARTERIAL HYPERTENSION
     Dosage: 20 MCG, 6X DAILY
     Dates: start: 20150303
  9. ALBUTEROL. [Concomitant]
     Active Substance: ALBUTEROL
     Dosage: 3 ML, Q6HRS
     Dates: start: 20151214
  10. IPRATROPIUM [Concomitant]
     Active Substance: IPRATROPIUM
     Dosage: 2 SPRAYS, Q12HRS
     Dates: start: 20140314
  11. ENOXAPARIN [Concomitant]
     Active Substance: ENOXAPARIN
     Dosage: 30 MG, UNK
  12. LACTOBACILLUS [Concomitant]
     Active Substance: LACTOBACILLUS ACIDOPHILUS
  13. PIPERACILLIN AND TAZOBACTAM [Concomitant]
     Active Substance: PIPERACILLIN SODIUM\TAZOBACTAM SODIUM
     Dosage: 3.975 UNK, Q12HRS
  14. PREDNISONE. [Concomitant]
     Active Substance: PREDNISONE
     Dosage: 10 MG, BID
     Dates: start: 20160309
  15. OPSUMIT [Suspect]
     Active Substance: MACITENTAN
     Indication: PULMONARY ARTERIAL HYPERTENSION
     Dosage: 10 MG, UNK
     Route: 048
     Dates: start: 20141104

REACTIONS (19)
  - Urinary tract infection [Unknown]
  - Septic shock [Unknown]
  - Dehydration [Recovered/Resolved]
  - Chronic obstructive pulmonary disease [Unknown]
  - Condition aggravated [Unknown]
  - Hyperkalaemia [Recovered/Resolved]
  - Deep vein thrombosis [Unknown]
  - Blood potassium abnormal [Recovered/Resolved]
  - Pain in extremity [Fatal]
  - Systemic scleroderma [Unknown]
  - Anaemia [Unknown]
  - Multiple organ dysfunction syndrome [Fatal]
  - Cellulitis [Fatal]
  - Blood creatinine abnormal [Recovered/Resolved]
  - Acute kidney injury [Unknown]
  - Peripheral swelling [Unknown]
  - Transfusion [Unknown]
  - Pneumonia [Unknown]
  - Lethargy [Unknown]

NARRATIVE: CASE EVENT DATE: 20150305
